FAERS Safety Report 20807660 (Version 2)
Quarter: 2022Q3

REPORT INFORMATION
  Report Type: Report from Study
  Country: JP (occurrence: JP)
  Receive Date: 20220510
  Receipt Date: 20220831
  Transmission Date: 20221027
  Serious: Yes (Other)
  Sender: FDA-Public Use
  Company Number: JP-RECORDATI RARE DISEASE INC.-2022001813

PATIENT
  Age: 0 Year
  Sex: Female
  Weight: .957 kg

DRUGS (10)
  1. NEOPROFEN [Suspect]
     Active Substance: IBUPROFEN LYSINE
     Indication: Patent ductus arteriosus
     Dosage: 5 MILLIGRAM
     Route: 042
     Dates: start: 20201202, end: 20201202
  2. NEOPROFEN [Suspect]
     Active Substance: IBUPROFEN LYSINE
     Dosage: 5 MILLIGRAM
     Route: 042
     Dates: start: 20201203, end: 20201203
  3. NEOPROFEN [Suspect]
     Active Substance: IBUPROFEN LYSINE
     Dosage: 3.50 MILLIGRAM
     Route: 042
     Dates: start: 20201209, end: 20201209
  4. NEOPROFEN [Suspect]
     Active Substance: IBUPROFEN LYSINE
     Dosage: 3.50 MILLIGRAM
     Route: 042
     Dates: start: 20201210, end: 20201210
  5. NEOPROFEN [Suspect]
     Active Substance: IBUPROFEN LYSINE
     Dosage: 3.50 MILLIGRAM
     Route: 042
     Dates: start: 20201212, end: 20201212
  6. MORPHINE HYDROCHLORIDE [Concomitant]
     Active Substance: MORPHINE HYDROCHLORIDE
     Indication: Intraventricular haemorrhage
     Dosage: UNK
     Route: 042
     Dates: start: 20201201, end: 20201205
  7. MORPHINE HYDROCHLORIDE [Concomitant]
     Active Substance: MORPHINE HYDROCHLORIDE
     Indication: Prophylaxis
  8. FUROSEMIDE [Concomitant]
     Active Substance: FUROSEMIDE
     Indication: Patent ductus arteriosus
     Dosage: UNK
     Route: 042
     Dates: start: 20201201, end: 20201215
  9. CAFFEINE [Concomitant]
     Active Substance: CAFFEINE
     Indication: Apnoeic attack
     Dosage: UNK
     Route: 042
     Dates: start: 20201201, end: 20201220
  10. SODIUM CHLORIDE [Concomitant]
     Active Substance: SODIUM CHLORIDE
     Indication: Hyponatraemia
     Dosage: UNK
     Route: 042
     Dates: start: 20201203, end: 20201207

REACTIONS (4)
  - Hyponatraemia [Recovered/Resolved]
  - Patent ductus arteriosus [Recovered/Resolved]
  - Renal disorder [Recovered/Resolved]
  - Anaemia [Recovered/Resolved]

NARRATIVE: CASE EVENT DATE: 20201203
